FAERS Safety Report 9443424 (Version 1)
Quarter: 2013Q3

REPORT INFORMATION
  Report Type: Report from Study
  Country: AU (occurrence: AU)
  Receive Date: 20130806
  Receipt Date: 20130806
  Transmission Date: 20140515
  Serious: Yes (Other)
  Sender: FDA-Public Use
  Company Number: PHHY2013AU082768

PATIENT
  Age: 71 Year
  Sex: Female

DRUGS (1)
  1. ACLASTA [Suspect]
     Dosage: UNK UKN, UNK
     Route: 042
     Dates: start: 2012

REACTIONS (6)
  - Asthma [Unknown]
  - Diabetes mellitus [Unknown]
  - Diverticulitis [Unknown]
  - Osteoporosis [Unknown]
  - Hypertension [Unknown]
  - Arthritis [Unknown]
